FAERS Safety Report 9512466 (Version 1)
Quarter: 2013Q1

REPORT INFORMATION
  Report Type: Spontaneous
  Country: US (occurrence: None)
  Receive Date: 20130305
  Receipt Date: 20130305
  Transmission Date: 20140127
  Serious: Yes (Other)
  Sender: FDA-Public Use
  Company Number: 163-21880-12042018

PATIENT
  Age: 73 Year
  Sex: Female
  Weight: 57.15 kg

DRUGS (15)
  1. REVLIMID (LENALIDOMIDE) (15 MILLIGRAM, CAPSULES) [Suspect]
     Indication: PLASMA CELL MYELOMA
     Dosage: 15 MG, 21 IN 21 D, PO
     Route: 048
     Dates: start: 20120308
  2. REVLIMID (LENALIDOMIDE) (15 MILLIGRAM, CAPSULES) [Suspect]
     Indication: AMYLOIDOSIS
     Dosage: 15 MG, 21 IN 21 D, PO
     Route: 048
     Dates: start: 20120308
  3. CORTICOSTERIOIDS (CORTICOSTEROIDS) (UNKNOWN) [Concomitant]
  4. DEXAMETHASONE (DEXAMETHASONE) (UNKNOWN) [Concomitant]
  5. FLUCONAZOLE (FLUCONAZOLE) (UNKNOWN) [Concomitant]
  6. ASPRIRIN (ACETYLSALICYLIC ACID) (UNKNOWN) [Concomitant]
  7. CALTRATE (CALCIUM CARBONATE) (UNKNOWN) [Concomitant]
  8. LOSARTAN (LOSARTAN) (UNKNOWN) [Concomitant]
  9. FUROSEMIDE (FUROSEMIDE) (UNKNOWN) [Concomitant]
  10. LIPITOR (ATORVASTATIN) (UNKNOWN) [Concomitant]
  11. SYNTHROID (LEVOTHYROXINE SODIUM) (UNKNOWN) [Concomitant]
  12. WELCHOL (COLESEVELAM HYDROCHLORIDE) (UNKNOWN) [Concomitant]
  13. FISH OIL (FISH OIL) (UNKNOWN) [Concomitant]
  14. VITAMIN D (ERGOCALCIFEROL) (UNKNOWN) [Concomitant]
  15. POTASSIUM CITRATE (POTASSIUM CITRATE) (UNKNOWN) [Concomitant]

REACTIONS (7)
  - Tremor [None]
  - Cellulitis [None]
  - Pyrexia [None]
  - Flushing [None]
  - Rash [None]
  - Oedema peripheral [None]
  - Fatigue [None]
